FAERS Safety Report 10677180 (Version 1)
Quarter: 2014Q4

REPORT INFORMATION
  Report Type: Report from Study
  Country: RU (occurrence: RU)
  Receive Date: 20141226
  Receipt Date: 20141226
  Transmission Date: 20150529
  Serious: Yes (Life-Threatening, Hospitalization, Other)
  Sender: FDA-Public Use
  Company Number: PHHY2014RU168569

PATIENT
  Age: 67 Year
  Sex: Male

DRUGS (6)
  1. VITAMIN C [Concomitant]
     Active Substance: ASCORBIC ACID
     Indication: THROMBOCYTOPENIA
     Dosage: 1 DF, 3-4 TIMES PER DAY
     Route: 065
     Dates: start: 20140220
  2. HYDREA [Concomitant]
     Active Substance: HYDROXYUREA
     Indication: CHRONIC MYELOID LEUKAEMIA
     Dosage: 1000 MG, UNK
     Route: 065
     Dates: start: 20140320
  3. NO TREATMENT RECEIVED [Suspect]
     Active Substance: UNSPECIFIED INGREDIENT
     Indication: CHRONIC MYELOID LEUKAEMIA
     Dosage: 800 UNK, UNK
     Route: 065
     Dates: end: 20140219
  4. ETAMSYLATE [Concomitant]
     Active Substance: ETHAMSYLATE
     Indication: THROMBOCYTOPENIA
     Dosage: 500 MG, 3-4 TIMES PER DAY
     Route: 065
     Dates: start: 20140220
  5. OMEZ D [Concomitant]
     Indication: GASTRITIS EROSIVE
     Dosage: 20 MG, BID
     Route: 065
     Dates: start: 20131112
  6. TASIGNA [Suspect]
     Active Substance: NILOTINIB
     Indication: CHRONIC MYELOID LEUKAEMIA
     Dosage: 1 DF, QD
     Route: 048
     Dates: start: 20120730, end: 20140219

REACTIONS (4)
  - Anaemia [Recovering/Resolving]
  - Adenoma benign [Unknown]
  - Gastritis erosive [Unknown]
  - Malignant neoplasm progression [Unknown]

NARRATIVE: CASE EVENT DATE: 20131202
